FAERS Safety Report 26198767 (Version 1)
Quarter: 2025Q4

REPORT INFORMATION
  Report Type: Spontaneous
  Country: CN (occurrence: CN)
  Receive Date: 20251225
  Receipt Date: 20251225
  Transmission Date: 20260118
  Serious: Yes (Hospitalization)
  Sender: ROCHE
  Company Number: CN-CHEPLA-2025014180

PATIENT
  Age: 74 Year
  Sex: Male
  Weight: 75 kg

DRUGS (9)
  1. BEVACIZUMAB [Suspect]
     Active Substance: BEVACIZUMAB
     Indication: Hepatocellular carcinoma
     Dosage: 1100MG [QD], APPROVAL NO. GYZZ S20190040
     Route: 042
     Dates: start: 20251121, end: 20251121
  2. XELODA [Suspect]
     Active Substance: CAPECITABINE
     Indication: Hepatocellular carcinoma
     Dosage: 0.3G [BID], APPROVAL NO. GYZZ H20073023
     Route: 048
     Dates: start: 20251121, end: 20251204
  3. XELODA [Suspect]
     Active Substance: CAPECITABINE
     Dosage: 1.5G [BID], APPROVAL NO. GYZZ H20073024
     Route: 048
     Dates: start: 20251121, end: 20251204
  4. XELODA [Suspect]
     Active Substance: CAPECITABINE
     Dosage: 1800MG BID PO D1-14 (ONE CYCLE EVERY 21 DAYS)
     Route: 048
     Dates: start: 20251121
  5. PUCOTENLIMAB [Suspect]
     Active Substance: PUCOTENLIMAB
     Indication: Hepatocellular carcinoma
     Dosage: 550MG [QD], APPROVAL NO. GYZZ S20220022
     Route: 042
     Dates: start: 20251121, end: 20251121
  6. OXALIPLATIN [Suspect]
     Active Substance: OXALIPLATIN
     Indication: Hepatocellular carcinoma
     Dosage: 150MG [QD], APPROVAL NO. GYZZ HJ20171064
     Route: 042
     Dates: start: 20251121, end: 20251121
  7. SODIUM CHLORIDE [Concomitant]
     Active Substance: SODIUM CHLORIDE
     Indication: Medication dilution
     Dosage: 100ML [QD], APPROVAL NO. GYZZ H12020024
     Route: 042
     Dates: start: 20251121, end: 20251121
  8. SODIUM CHLORIDE [Concomitant]
     Active Substance: SODIUM CHLORIDE
     Dosage: 250 ML [QD], APPROVAL NO. GYZZ H12020025
     Route: 042
     Dates: start: 20251121, end: 20251121
  9. DEXTROSE [Concomitant]
     Active Substance: DEXTROSE MONOHYDRATE
     Indication: Medication dilution
     Dosage: 500ML [QD], APPROVAL NO. GYZZ H20023198
     Route: 042
     Dates: start: 20251121, end: 20251121

REACTIONS (2)
  - Liver injury [Recovering/Resolving]
  - Off label use [Unknown]

NARRATIVE: CASE EVENT DATE: 20251121
